FAERS Safety Report 8367087-5 (Version None)
Quarter: 2012Q2

REPORT INFORMATION
  Report Type: 
  Country: None (occurrence: None)
  Receive Date: 20120517
  Receipt Date: 20120508
  Transmission Date: 20120825
  Serious: Yes (Congenital Anomaly, Other)
  Sender: FDA-Public Use
  Company Number: CH-ASTRAZENECA-2012SE29952

PATIENT
  Age: 0 Week

DRUGS (8)
  1. ACETAMINOPHEN [Suspect]
     Indication: BRONCHITIS
     Dosage: FOUR TIMES A DAY
     Route: 064
     Dates: start: 20111217
  2. IBUPROFEN TABLETS [Suspect]
     Indication: BRONCHITIS
     Dosage: FOUR TIMES A DAY
     Route: 064
     Dates: start: 20111217
  3. DIPYRONE TAB [Suspect]
     Indication: BRONCHITIS
     Dosage: TWO TIMES DAY
     Route: 064
     Dates: start: 20111217, end: 20111220
  4. RESYL PLUS [Suspect]
     Indication: BRONCHITIS
     Dosage: THREE TIMES A DAY
     Route: 064
     Dates: start: 20111217, end: 20111219
  5. SYMBICORT [Suspect]
     Indication: BRONCHITIS
     Dosage: UNKNOWN DOSE TWO PER DAY
     Route: 064
     Dates: start: 20111217, end: 20111218
  6. MYDOCALM [Suspect]
     Indication: BRONCHITIS
     Dosage: FIVE TIMES PER DAY
     Route: 064
     Dates: start: 20111217, end: 20111221
  7. ACETYLCYSTEINE [Suspect]
     Indication: BRONCHITIS
     Dosage: TWO TIMES A DAY
     Route: 064
     Dates: start: 20111217, end: 20111219
  8. VOLTAREN [Suspect]
     Indication: BRONCHITIS
     Dosage: ONCE DAILY
     Route: 064
     Dates: start: 20111217, end: 20111201

REACTIONS (1)
  - TRISOMY 21 [None]
